FAERS Safety Report 11083308 (Version 1)
Quarter: 2015Q2

REPORT INFORMATION
  Report Type: Spontaneous
  Country: US (occurrence: US)
  Receive Date: 20150501
  Receipt Date: 20150501
  Transmission Date: 20150821
  Serious: No
  Sender: FDA-Public Use
  Company Number: US-ABBVIE-15P-163-1373433-00

PATIENT
  Age: 71 Year
  Sex: Male
  Weight: 78.54 kg

DRUGS (4)
  1. ANDROGEL [Suspect]
     Active Substance: TESTOSTERONE
     Dosage: ALTERNATING 3 PUMPS WITH 2 PUMPS DAILY
     Route: 061
     Dates: start: 2014, end: 201501
  2. ANDROGEL [Suspect]
     Active Substance: TESTOSTERONE
     Dosage: ALTERNATING 2 PUMPS WITH 3 PUMPS EVERY OTHER DAY.
     Route: 061
     Dates: start: 2014, end: 201501
  3. ANDROGEL [Suspect]
     Active Substance: TESTOSTERONE
     Indication: BLOOD TESTOSTERONE DECREASED
     Route: 061
     Dates: start: 201306, end: 2014
  4. ANDROGEL [Suspect]
     Active Substance: TESTOSTERONE
     Route: 061
     Dates: start: 201503

REACTIONS (6)
  - Haemoglobin increased [Recovered/Resolved]
  - Haematocrit increased [Recovered/Resolved]
  - Blood testosterone decreased [Not Recovered/Not Resolved]
  - Weight increased [Not Recovered/Not Resolved]
  - Asthenia [Not Recovered/Not Resolved]
  - Fatigue [Not Recovered/Not Resolved]

NARRATIVE: CASE EVENT DATE: 201412
